FAERS Safety Report 13412350 (Version 4)
Quarter: 2022Q2

REPORT INFORMATION
  Report Type: Spontaneous
  Country: US (occurrence: US)
  Receive Date: 20170406
  Receipt Date: 20220616
  Transmission Date: 20220721
  Serious: Yes (Other)
  Sender: FDA-Public Use
  Company Number: US-JNJFOC-20170315462

PATIENT
  Age: 23 Year
  Sex: Male

DRUGS (14)
  1. RISPERDAL [Suspect]
     Active Substance: RISPERIDONE
     Indication: Schizophrenia
     Dosage: IN VARYING DOSES OF 0.5, 2, 3, 4 MG
     Route: 048
     Dates: start: 20050926, end: 20080227
  2. RISPERDAL [Suspect]
     Active Substance: RISPERIDONE
     Indication: Paranoia
     Dosage: IN VARYING DOSES OF 0.25, 0.5, 1, 2, 3, 4 MG
     Route: 048
     Dates: start: 20110307, end: 20140110
  3. RISPERDAL [Suspect]
     Active Substance: RISPERIDONE
     Indication: Affective disorder
  4. RISPERDAL [Suspect]
     Active Substance: RISPERIDONE
     Indication: Psychotic disorder
  5. RISPERDAL [Suspect]
     Active Substance: RISPERIDONE
     Indication: Mental disorder
  6. RISPERIDONE [Suspect]
     Active Substance: RISPERIDONE
     Indication: Schizophrenia
     Dosage: IN VARYING DOSES OF 2, 3 AND 4 MG
     Route: 048
     Dates: start: 20120817, end: 20140610
  7. RISPERIDONE [Suspect]
     Active Substance: RISPERIDONE
     Indication: Paranoia
     Route: 048
     Dates: start: 2007
  8. RISPERIDONE [Suspect]
     Active Substance: RISPERIDONE
     Indication: Affective disorder
  9. RISPERIDONE [Suspect]
     Active Substance: RISPERIDONE
     Indication: Mental disorder
  10. INVEGA [Suspect]
     Active Substance: PALIPERIDONE
     Indication: Schizophrenia
     Route: 048
     Dates: start: 20071030, end: 20071114
  11. INVEGA [Suspect]
     Active Substance: PALIPERIDONE
     Indication: Paranoia
  12. INVEGA [Suspect]
     Active Substance: PALIPERIDONE
     Indication: Affective disorder
  13. INVEGA [Suspect]
     Active Substance: PALIPERIDONE
     Indication: Mental disorder
  14. RISPERIDONE [Suspect]
     Active Substance: RISPERIDONE
     Indication: Product used for unknown indication
     Route: 048

REACTIONS (6)
  - Obesity [Unknown]
  - Gynaecomastia [Unknown]
  - Emotional distress [Unknown]
  - Musculoskeletal stiffness [Unknown]
  - Treatment noncompliance [Unknown]
  - Sedation [Unknown]

NARRATIVE: CASE EVENT DATE: 20080201
